FAERS Safety Report 8854681 (Version 2)
Quarter: 2013Q1

REPORT INFORMATION
  Report Type: Report from Study
  Country: DE (occurrence: DE)
  Receive Date: 20121023
  Receipt Date: 20130208
  Transmission Date: 20140127
  Serious: Yes (Hospitalization)
  Sender: FDA-Public Use
  Company Number: DE-TEVA-364255GER

PATIENT
  Sex: Male

DRUGS (16)
  1. DOXORUBICIN [Suspect]
     Indication: B-CELL LYMPHOMA
     Dosage: DOSE REDUCED
     Route: 042
     Dates: start: 20120605
  2. DOXORUBICIN [Suspect]
     Route: 042
     Dates: start: 20120417, end: 20120604
  3. PREDNISONE [Suspect]
     Indication: B-CELL LYMPHOMA
     Dosage: REDUCED DOSE
     Route: 065
     Dates: start: 20120605
  4. PREDNISONE [Suspect]
     Dosage: 100 MILLIGRAM DAILY;
     Route: 065
     Dates: start: 20120427, end: 20120604
  5. VINCRISTINE [Suspect]
     Indication: B-CELL LYMPHOMA
     Dosage: REDUCED DOSE
     Route: 042
     Dates: start: 20120605
  6. VINCRISTINE [Suspect]
     Route: 042
     Dates: start: 20120417, end: 20120604
  7. RITUXIMAB [Suspect]
     Indication: B-CELL LYMPHOMA
     Dosage: REDUCED DOSE
     Route: 042
     Dates: start: 20120605
  8. RITUXIMAB [Suspect]
     Route: 042
     Dates: start: 20120416, end: 20120604
  9. CYCLOPHOSPHAMIDE [Suspect]
     Indication: B-CELL LYMPHOMA
     Dosage: DOSE REDUCE
     Route: 042
     Dates: start: 20120605
  10. CYCLOPHOSPHAMIDE [Suspect]
     Route: 042
     Dates: start: 20120417, end: 20120604
  11. PEGFILGRASTIM [Suspect]
     Indication: B-CELL LYMPHOMA
     Dosage: 6 MILLIGRAM DAILY;
     Route: 058
     Dates: start: 20120420
  12. LEVOTHYROXINE SODIUM [Concomitant]
     Indication: HYPERTHYROIDISM
     Dosage: 100 MICROGRAM DAILY;
     Route: 048
  13. DIGITOXIN [Concomitant]
     Dosage: 1 MILLIGRAM DAILY;
     Route: 048
  14. SIMVASTATIN [Concomitant]
     Indication: HYPERLIPIDAEMIA
     Dosage: 20 MILLIGRAM DAILY;
     Route: 048
  15. BISOPROLOL [Concomitant]
     Indication: HYPERTENSION
     Dosage: 5 MILLIGRAM DAILY;
     Route: 048
  16. AMIODARONE HCL [Concomitant]
     Indication: TACHYARRHYTHMIA
     Dosage: 200 MILLIGRAM DAILY;
     Route: 048
     Dates: start: 201205

REACTIONS (6)
  - Palmar-plantar erythrodysaesthesia syndrome [Recovered/Resolved]
  - Pain of skin [Recovered/Resolved]
  - Dehydration [Recovered/Resolved]
  - Stomatitis [Recovered/Resolved]
  - Diarrhoea [Recovered/Resolved]
  - Gastrointestinal inflammation [Recovered/Resolved]
